FAERS Safety Report 5138515-3 (Version None)
Quarter: 2006Q4

REPORT INFORMATION
  Report Type: 
  Country: None (occurrence: None)
  Receive Date: 20061030
  Receipt Date: 20060307
  Transmission Date: 20070319
  Serious: No
  Sender: FDA-Public Use
  Company Number: US-GLAXOSMITHKLINE-A0596523A

PATIENT
  Age: 71 Year
  Sex: Female

DRUGS (6)
  1. ADVAIR HFA [Suspect]
     Indication: CHRONIC OBSTRUCTIVE PULMONARY DISEASE
     Dosage: 1PUFF TWICE PER DAY
     Route: 055
     Dates: start: 20050101
  2. NAPROXEN [Concomitant]
  3. CLARITIN [Concomitant]
  4. HYDROCHLOROTHIAZIDE [Concomitant]
  5. FLONASE [Concomitant]
  6. CALCIUM GLUCONATE [Concomitant]

REACTIONS (2)
  - BACK DISORDER [None]
  - MUSCLE SPASMS [None]
